FAERS Safety Report 15622621 (Version 1)
Quarter: 2018Q4

REPORT INFORMATION
  Report Type: Spontaneous
  Country: ES (occurrence: ES)
  Receive Date: 20181115
  Receipt Date: 20181115
  Transmission Date: 20190205
  Serious: Yes (Death, Hospitalization, Other)
  Sender: FDA-Public Use
  Company Number: ES-TEVA-2018-ES-974965

PATIENT
  Age: 46 Year
  Sex: Female
  Weight: 53 kg

DRUGS (3)
  1. TACROLIMUS (2694A) [Interacting]
     Active Substance: TACROLIMUS
     Indication: RENAL TRANSPLANT
     Dosage: 7 MILLIGRAM DAILY;
     Route: 048
     Dates: start: 201702, end: 20180119
  2. MICOFENOLATO SODIO (7330SO) [Interacting]
     Active Substance: MYCOPHENOLATE SODIUM
     Indication: RENAL TRANSPLANT
     Route: 048
     Dates: start: 201702, end: 201710
  3. PREDNISONA (886A) [Suspect]
     Active Substance: PREDNISONE
     Indication: RENAL TRANSPLANT
     Dosage: 10 MILLIGRAM DAILY;
     Route: 048
     Dates: start: 201702, end: 20180210

REACTIONS (2)
  - Drug interaction [Unknown]
  - Pneumonia cytomegaloviral [Fatal]

NARRATIVE: CASE EVENT DATE: 20180118
